FAERS Safety Report 10173765 (Version 2)
Quarter: 2014Q2

REPORT INFORMATION
  Report Type: Spontaneous
  Country: US (occurrence: US)
  Receive Date: 20140515
  Receipt Date: 20140618
  Transmission Date: 20141212
  Serious: Yes (Hospitalization, Other)
  Sender: FDA-Public Use
  Company Number: US-ELI_LILLY_AND_COMPANY-US201405001848

PATIENT
  Age: 56 Year
  Sex: Female

DRUGS (13)
  1. HUMALOG LISPRO [Suspect]
     Indication: TYPE 1 DIABETES MELLITUS
     Dosage: UNK UNK, PRN
     Route: 065
  2. LISINOPRIL [Concomitant]
  3. TENORMIN [Concomitant]
  4. PRAVACHOL [Concomitant]
  5. ELAVIL                             /00002202/ [Concomitant]
  6. VALIUM                             /00017001/ [Concomitant]
  7. BACLOFEN [Concomitant]
  8. LORTAB                             /00607101/ [Concomitant]
  9. CULTURELLE [Concomitant]
  10. DILANTIN                           /00017401/ [Concomitant]
  11. PEPCID                             /00706001/ [Concomitant]
  12. TEGRETOL [Concomitant]
  13. LANTUS [Concomitant]

REACTIONS (5)
  - Urosepsis [Recovered/Resolved]
  - Loss of consciousness [Recovered/Resolved]
  - Disorientation [Recovered/Resolved]
  - Amnesia [Recovered/Resolved]
  - Furuncle [Unknown]
